FAERS Safety Report 12948632 (Version 1)
Quarter: 2020Q3

REPORT INFORMATION
  Report Type: Report from Study
  Country: RU (occurrence: RU)
  Receive Date: 20161116
  Receipt Date: 20161116
  Transmission Date: 20201104
  Serious: Yes (Hospitalization)
  Sender: FDA-Public Use
  Company Number: RU-JNJFOC-20160406619

PATIENT
  Age: 31 Year
  Sex: Male
  Weight: 70.5 kg

DRUGS (2)
  1. GOLIMUMAB [Suspect]
     Active Substance: GOLIMUMAB
     Indication: ANKYLOSING SPONDYLITIS
     Dosage: EVERY 4 WEEK/EVERY 8 WEEK
     Route: 042
     Dates: start: 20150617
  2. GOLIMUMAB [Suspect]
     Active Substance: GOLIMUMAB
     Indication: ANKYLOSING SPONDYLITIS
     Route: 042
     Dates: start: 20160218

REACTIONS (1)
  - Appendicitis [Recovered/Resolved]

NARRATIVE: CASE EVENT DATE: 20160403
